FAERS Safety Report 24015171 (Version 3)
Quarter: 2024Q3

REPORT INFORMATION
  Report Type: Report from Study
  Country: IN (occurrence: IN)
  Receive Date: 20240626
  Receipt Date: 20240731
  Transmission Date: 20241017
  Serious: Yes (Other)
  Sender: ROCHE
  Company Number: IN-ROCHE-10000008968

PATIENT
  Age: 71 Year
  Sex: Female

DRUGS (1)
  1. MABTHERA [Suspect]
     Active Substance: RITUXIMAB
     Indication: Diffuse large B-cell lymphoma
     Dosage: MOST RECENT DOSE WAS RECEIVED IN MAY/2023. ONGOING: YES.
     Route: 042
     Dates: start: 20221128

REACTIONS (1)
  - Diffuse large B-cell lymphoma recurrent [Recovered/Resolved with Sequelae]
